FAERS Safety Report 21513399 (Version 1)
Quarter: 2022Q4

REPORT INFORMATION
  Report Type: Report from Study
  Country: CN (occurrence: CN)
  Receive Date: 20221027
  Receipt Date: 20221027
  Transmission Date: 20230113
  Serious: Yes (Other)
  Sender: FDA-Public Use
  Company Number: CN-NOVARTISPH-NVSC2022CN238392

PATIENT
  Age: 57 Year
  Sex: Male
  Weight: 60 kg

DRUGS (41)
  1. UNSPECIFIED INGREDIENT [Suspect]
     Active Substance: UNSPECIFIED INGREDIENT
     Indication: Auditory nerve disorder
     Dosage: 4 ML, QD (INDICATION- TROPHIC NERVE)
     Route: 041
     Dates: start: 20221003
  2. UNSPECIFIED INGREDIENT [Suspect]
     Active Substance: UNSPECIFIED INGREDIENT
  3. UNSPECIFIED INGREDIENT [Suspect]
     Active Substance: UNSPECIFIED INGREDIENT
  4. AVIBACTAM SODIUM [Suspect]
     Active Substance: AVIBACTAM SODIUM
     Indication: Pneumonia
     Dosage: 2.5 G, Q8H
     Route: 041
     Dates: start: 20221008
  5. PHENOBARBITAL SODIUM [Suspect]
     Active Substance: PHENOBARBITAL SODIUM
     Indication: Prophylaxis
     Dosage: 100 MG, Q8H
     Route: 030
     Dates: start: 20221004, end: 20221007
  6. MANNITOL [Concomitant]
     Active Substance: MANNITOL
     Indication: Product used for unknown indication
     Dosage: UNK
     Route: 065
     Dates: start: 20221003
  7. DEXAMETHASONE SODIUM PHOSPHATE [Concomitant]
     Active Substance: DEXAMETHASONE SODIUM PHOSPHATE
     Indication: Prophylaxis
     Dosage: UNK
     Route: 065
     Dates: start: 20221003, end: 20221007
  8. DEXAMETHASONE SODIUM PHOSPHATE [Concomitant]
     Active Substance: DEXAMETHASONE SODIUM PHOSPHATE
     Indication: Cooling therapy
     Dosage: UNK
     Route: 065
     Dates: end: 20221010
  9. SODIUM LACTATE [Concomitant]
     Active Substance: SODIUM LACTATE
     Indication: Fluid replacement
     Dosage: UNK
     Route: 065
     Dates: start: 20221003, end: 20221009
  10. POTASSIUM CHLORIDE [Concomitant]
     Active Substance: POTASSIUM CHLORIDE
     Indication: Mineral supplementation
     Dosage: UNK
     Route: 065
     Dates: start: 20221003, end: 20221008
  11. OXIRACETAM [Concomitant]
     Active Substance: OXIRACETAM
     Indication: Therapeutic procedure
     Dosage: UNK
     Route: 065
     Dates: start: 20221003
  12. VITAMIN B6 [Concomitant]
     Active Substance: PYRIDOXINE HYDROCHLORIDE
     Indication: Vitamin supplementation
     Dosage: UNK
     Route: 065
     Dates: start: 20221003
  13. INSULIN NOS [Concomitant]
     Active Substance: INSULIN NOS
     Indication: Hypoglycaemia
     Dosage: UNK
     Route: 065
     Dates: start: 20221003, end: 20221010
  14. HAEMOCOAGULASE [Concomitant]
     Indication: Haemostasis
     Dosage: UNK
     Route: 065
     Dates: start: 20221003, end: 20221005
  15. VALPROATE SODIUM [Concomitant]
     Active Substance: VALPROATE SODIUM
     Indication: Prophylaxis
     Dosage: UNK
     Route: 065
     Dates: start: 20221003, end: 20221006
  16. FAMOTIDINE [Concomitant]
     Active Substance: FAMOTIDINE
     Indication: Abdominal discomfort
     Dosage: UNK
     Route: 065
     Dates: start: 20221003, end: 20221008
  17. SUCCINYLATED GELATIN [Concomitant]
     Active Substance: SUCCINYLATED GELATIN
     Indication: Fluid replacement
     Dosage: UNK
     Route: 065
     Dates: start: 20221003
  18. ACETYLCYSTEINE [Concomitant]
     Active Substance: ACETYLCYSTEINE
     Indication: Productive cough
     Dosage: UNK
     Route: 065
     Dates: start: 20221003
  19. BUDESONIDE [Concomitant]
     Active Substance: BUDESONIDE
     Indication: Productive cough
     Dosage: UNK
     Route: 065
     Dates: start: 20221003
  20. ALBUTEROL SULFATE\IPRATROPIUM BROMIDE [Concomitant]
     Active Substance: ALBUTEROL SULFATE\IPRATROPIUM BROMIDE
     Indication: Productive cough
     Dosage: UNK
     Route: 065
     Dates: start: 20221003
  21. DOLASETRON MESYLATE [Concomitant]
     Active Substance: DOLASETRON MESYLATE
     Indication: Antiemetic supportive care
     Dosage: UNK
     Route: 065
     Dates: start: 20221003, end: 20221007
  22. SODIUM BICARBONATE [Concomitant]
     Active Substance: SODIUM BICARBONATE
     Indication: Fluid replacement
     Dosage: UNK
     Route: 065
     Dates: start: 20221003
  23. LEVETIRACETAM [Concomitant]
     Active Substance: LEVETIRACETAM
     Indication: Prophylaxis
     Dosage: UNK
     Route: 065
     Dates: start: 20221006
  24. DEXTROSE [Concomitant]
     Active Substance: DEXTROSE
     Indication: Therapeutic procedure
     Dosage: UNK
     Route: 065
     Dates: start: 20221008, end: 20221010
  25. OMEPRAZOLE [Concomitant]
     Active Substance: OMEPRAZOLE
     Indication: Abdominal discomfort
     Dosage: UNK
     Route: 065
     Dates: start: 20221008
  26. CEFUROXIME SODIUM [Concomitant]
     Active Substance: CEFUROXIME SODIUM
     Indication: Infection prophylaxis
     Dosage: UNK
     Route: 065
     Dates: start: 20221003, end: 20221003
  27. INDOMETHACIN [Concomitant]
     Active Substance: INDOMETHACIN
     Indication: Cooling therapy
     Dosage: UNK
     Route: 065
     Dates: start: 20221003, end: 20221006
  28. PROPOFOL [Concomitant]
     Active Substance: PROPOFOL
     Indication: Sedation
     Dosage: UNK
     Route: 065
     Dates: start: 20221003, end: 20221005
  29. CHLORPROMAZINE [Concomitant]
     Active Substance: CHLORPROMAZINE
     Indication: Sedation
     Dosage: UNK
     Route: 065
     Dates: start: 20221007, end: 20221007
  30. CHLORPROMAZINE [Concomitant]
     Active Substance: CHLORPROMAZINE
     Indication: Cooling therapy
  31. AMINOPHYLLINE [Concomitant]
     Active Substance: AMINOPHYLLINE
     Indication: Asthma
     Dosage: UNK
     Route: 065
     Dates: start: 20221007, end: 20221007
  32. FELODIPINE [Concomitant]
     Active Substance: FELODIPINE
     Indication: Depression
     Dosage: UNK
     Route: 065
     Dates: start: 20221007, end: 20221009
  33. PROMETHAZINE [Concomitant]
     Active Substance: PROMETHAZINE HYDROCHLORIDE
     Indication: Sedation
     Dosage: UNK
     Route: 065
     Dates: start: 20221007, end: 20221007
  34. PROMETHAZINE [Concomitant]
     Active Substance: PROMETHAZINE HYDROCHLORIDE
     Indication: Cooling therapy
  35. IBUPROFEN [Concomitant]
     Active Substance: IBUPROFEN
     Indication: Cooling therapy
     Dosage: UNK
     Route: 065
     Dates: start: 20221008, end: 20221009
  36. ALPRAZOLAM [Concomitant]
     Active Substance: ALPRAZOLAM
     Indication: Sedation
     Dosage: UNK
     Route: 065
     Dates: start: 20021009, end: 20221009
  37. NITROGLYCERIN [Concomitant]
     Active Substance: NITROGLYCERIN
     Indication: Depression
     Dosage: UNK
     Route: 065
     Dates: start: 20221009, end: 20221009
  38. AMIKACIN SULFATE [Concomitant]
     Active Substance: AMIKACIN SULFATE
     Indication: Pneumonia
     Dosage: UNK
     Route: 065
     Dates: start: 20221008, end: 20221010
  39. LINEZOLID [Concomitant]
     Active Substance: LINEZOLID
     Indication: Pneumonia
     Dosage: UNK
     Route: 065
     Dates: start: 20221008, end: 20221010
  40. COMPOUND AMINO ACID (14AA) [Concomitant]
     Indication: Fluid replacement
     Dosage: UNK
     Route: 065
     Dates: start: 20221003, end: 20221008
  41. ENTERAL [Concomitant]
     Indication: Product used for unknown indication
     Dosage: UNK
     Route: 065
     Dates: start: 20221006

REACTIONS (10)
  - Drug-induced liver injury [Recovering/Resolving]
  - Brain contusion [Unknown]
  - Cerebral haemorrhage [Not Recovered/Not Resolved]
  - Subarachnoid haemorrhage [Not Recovered/Not Resolved]
  - Hepatic function abnormal [Recovering/Resolving]
  - Anaemia [Unknown]
  - Rib fracture [Not Recovered/Not Resolved]
  - Irritability [Not Recovered/Not Resolved]
  - Malnutrition [Not Recovered/Not Resolved]
  - Product use in unapproved indication [Unknown]

NARRATIVE: CASE EVENT DATE: 20221003
